FAERS Safety Report 20385494 (Version 2)
Quarter: 2022Q1

REPORT INFORMATION
  Report Type: Spontaneous
  Country: CA (occurrence: CA)
  Receive Date: 20220127
  Receipt Date: 20220210
  Transmission Date: 20220423
  Serious: Yes (Hospitalization, Other)
  Sender: FDA-Public Use
  Company Number: CA-TEVA-2022-CA-2001139

PATIENT
  Age: 6 Decade
  Sex: Male

DRUGS (15)
  1. ARIPIPRAZOLE [Suspect]
     Active Substance: ARIPIPRAZOLE
     Indication: Depression
     Route: 065
  2. RISPERIDONE [Suspect]
     Active Substance: RISPERIDONE
     Indication: Depression
     Route: 065
  3. PAROXETINE [Suspect]
     Active Substance: PAROXETINE
     Indication: Depression
     Dosage: 10 MILLIGRAM DAILY;
     Route: 048
  4. PAROXETINE [Suspect]
     Active Substance: PAROXETINE
     Dosage: 20 MILLIGRAM DAILY;
     Route: 048
  5. ASENAPINE [Suspect]
     Active Substance: ASENAPINE
     Indication: Depression
     Dosage: 5 MILLIGRAM DAILY;
     Route: 048
  6. ASENAPINE [Suspect]
     Active Substance: ASENAPINE
     Indication: Depression
     Dosage: 10 MILLIGRAM DAILY;
     Route: 048
  7. BENZTROPINE [Suspect]
     Active Substance: BENZTROPINE
     Indication: Depression
     Dosage: 2 MILLIGRAM DAILY;
     Route: 048
  8. BISOPROLOL [Concomitant]
     Active Substance: BISOPROLOL
     Indication: Hypertension
     Dosage: 5 MILLIGRAM DAILY;
     Route: 048
  9. DDAVP [Concomitant]
     Active Substance: DESMOPRESSIN ACETATE
     Indication: Nephrogenic diabetes insipidus
     Dosage: 240 MILLIGRAM DAILY;
     Route: 048
  10. DIVALPROEX SODIUM [Concomitant]
     Active Substance: DIVALPROEX SODIUM
     Indication: Bipolar disorder
     Dosage: 500 MILLIGRAM DAILY; QAM
     Route: 048
  11. DIVALPROEX SODIUM [Concomitant]
     Active Substance: DIVALPROEX SODIUM
     Dosage: QHS, 1000 MG
     Route: 048
  12. GABAPENTIN [Concomitant]
     Active Substance: GABAPENTIN
     Indication: Product used for unknown indication
     Dosage: 1800 MILLIGRAM DAILY; EVERY EIGHT HOURS
     Route: 048
  13. MEDROXYPROGESTERONE [Concomitant]
     Active Substance: MEDROXYPROGESTERONE
     Indication: Product used for unknown indication
     Dosage: 200 MILLIGRAM DAILY;
     Route: 048
  14. QUINAPRIL [Concomitant]
     Active Substance: QUINAPRIL
     Indication: Product used for unknown indication
     Dosage: 20 MILLIGRAM DAILY;
     Route: 048
  15. ROSUVASTATIN [Concomitant]
     Active Substance: ROSUVASTATIN
     Indication: Dyslipidaemia
     Dosage: 200 MILLIGRAM DAILY;
     Route: 048

REACTIONS (3)
  - Sedation complication [Unknown]
  - Anticholinergic syndrome [Recovering/Resolving]
  - Toxicity to various agents [Recovering/Resolving]
